FAERS Safety Report 8601489-4 (Version None)
Quarter: 2012Q3

REPORT INFORMATION
  Report Type: 
  Country: None (occurrence: None)
  Receive Date: 20120817
  Receipt Date: 20111005
  Transmission Date: 20120928
  Serious: No
  Sender: FDA-Public Use
  Company Number: US-BRISTOL-MYERS SQUIBB COMPANY-16115255

PATIENT
  Age: 81 Year
  Sex: Male

DRUGS (6)
  1. LUPRON [Concomitant]
     Dosage: 8 YEAR.
  2. ALEVE [Concomitant]
  3. THYROID TAB [Concomitant]
     Dosage: FORM: TABLETS
  4. WARFARIN [Concomitant]
  5. SPRYCEL [Suspect]
     Indication: CHRONIC MYELOID LEUKAEMIA
     Dosage: DOSE REDUCED TO 80MG ON 28SEP2011
     Route: 048
     Dates: start: 20110702
  6. LASIX [Concomitant]

REACTIONS (3)
  - DYSPHONIA [None]
  - DYSPNOEA [None]
  - DIARRHOEA [None]
